FAERS Safety Report 18115662 (Version 2)
Quarter: 2020Q4

REPORT INFORMATION
  Report Type: Spontaneous
  Country: US (occurrence: US)
  Receive Date: 20200805
  Receipt Date: 20201116
  Transmission Date: 20210113
  Serious: Yes (Hospitalization, Other)
  Sender: FDA-Public Use
  Company Number: US-ASTRAZENECA-2020SE95731

PATIENT
  Age: 20254 Day
  Sex: Male
  Weight: 153.3 kg

DRUGS (78)
  1. FARXIGA [Suspect]
     Active Substance: DAPAGLIFLOZIN PROPANEDIOL
     Indication: WEIGHT DECREASED
     Route: 048
     Dates: start: 20140716, end: 20171204
  2. EDARBYCLOR [Concomitant]
     Active Substance: AZILSARTAN KAMEDOXOMIL\CHLORTHALIDONE
     Dates: start: 20170324
  3. FUROSEMIDE. [Concomitant]
     Active Substance: FUROSEMIDE
     Dates: start: 20170407
  4. SULFAMETHOXAZOLE [Concomitant]
     Active Substance: SULFAMETHOXAZOLE
     Dates: start: 20171023
  5. PITRESSIN [Concomitant]
     Active Substance: VASOPRESSIN
  6. LANTUS [Concomitant]
     Active Substance: INSULIN GLARGINE
  7. NEBIVOLOL HCL [Concomitant]
     Active Substance: NEBIVOLOL
  8. MULTIVITAMINS [Concomitant]
     Active Substance: VITAMINS
  9. GLUCAGEN [Concomitant]
     Active Substance: GLUCAGON HYDROCHLORIDE
  10. CLEOCIN [Concomitant]
     Active Substance: CLINDAMYCIN PHOSPHATE
  11. LOPRESSOR [Concomitant]
     Active Substance: METOPROLOL TARTRATE
  12. NYSTOP [Concomitant]
     Active Substance: NYSTATIN
  13. CALCIUM ALGINATE [Concomitant]
     Active Substance: CALCIUM ALGINATE
  14. XYLOCAINE [Concomitant]
     Active Substance: LIDOCAINE HYDROCHLORIDE
  15. FARXIGA [Suspect]
     Active Substance: DAPAGLIFLOZIN PROPANEDIOL
     Indication: TYPE 2 DIABETES MELLITUS
     Route: 048
     Dates: start: 20140716, end: 20171204
  16. GABAPENTIN. [Concomitant]
     Active Substance: GABAPENTIN
     Dates: start: 20170324
  17. MUPIROCIN. [Concomitant]
     Active Substance: MUPIROCIN
     Dates: start: 20171101
  18. CEPHALEXIN. [Concomitant]
     Active Substance: CEPHALEXIN
     Dates: start: 20130305
  19. PRECEDEX [Concomitant]
     Active Substance: DEXMEDETOMIDINE HYDROCHLORIDE
  20. BREVIBLOC [Concomitant]
     Active Substance: ESMOLOL HYDROCHLORIDE
  21. CLONIDINE. [Concomitant]
     Active Substance: CLONIDINE
  22. IBUPROFEN. [Concomitant]
     Active Substance: IBUPROFEN
  23. ZOSYN [Concomitant]
     Active Substance: PIPERACILLIN SODIUM\TAZOBACTAM SODIUM
  24. BYSTOLIC [Concomitant]
     Active Substance: NEBIVOLOL HYDROCHLORIDE
     Dates: start: 20170505
  25. DOXYCYCLINE. [Concomitant]
     Active Substance: DOXYCYCLINE
     Dates: start: 20180112
  26. SPIRONOLACTONE. [Concomitant]
     Active Substance: SPIRONOLACTONE
     Dates: start: 20130305
  27. AZACTAM [Concomitant]
     Active Substance: AZTREONAM
     Dates: start: 20151226
  28. HYDROXYZINE HYDROCHLORIDE. [Concomitant]
     Active Substance: HYDROXYZINE HYDROCHLORIDE
  29. OXYCODONE HYDROCHLORIDE. [Concomitant]
     Active Substance: OXYCODONE HYDROCHLORIDE
  30. DEXTROSE. [Concomitant]
     Active Substance: DEXTROSE
  31. LIDOCAINE. [Concomitant]
     Active Substance: LIDOCAINE
  32. PRADAXA [Concomitant]
     Active Substance: DABIGATRAN ETEXILATE MESYLATE
     Dates: start: 20170221
  33. PRAVASTATIN. [Concomitant]
     Active Substance: PRAVASTATIN
     Dates: start: 20170327
  34. XARELTO [Concomitant]
     Active Substance: RIVAROXABAN
     Dates: start: 20180301
  35. OXYCODONE [Concomitant]
     Active Substance: OXYCODONE
     Dates: start: 20160412
  36. PROTONIX [Concomitant]
     Active Substance: PANTOPRAZOLE SODIUM
  37. DIPRIVAN [Concomitant]
     Active Substance: PROPOFOL
  38. APRESOLINE HYDROCHLORIDE [Concomitant]
     Active Substance: HYDRALAZINE HYDROCHLORIDE
  39. MELOXICAM. [Concomitant]
     Active Substance: MELOXICAM
  40. BENZONATATE. [Concomitant]
     Active Substance: BENZONATATE
  41. MIRALAX [Concomitant]
     Active Substance: POLYETHYLENE GLYCOL 3350
  42. ONDANSETRON [Concomitant]
     Active Substance: ONDANSETRON
  43. ASCORBIC ACID. [Concomitant]
     Active Substance: ASCORBIC ACID
  44. AMOXICILLIN-POT CLAVULANATE [Concomitant]
     Active Substance: AMOXICILLIN\CLAVULANATE POTASSIUM
  45. FARXIGA [Suspect]
     Active Substance: DAPAGLIFLOZIN PROPANEDIOL
     Indication: TYPE 2 DIABETES MELLITUS
     Route: 048
     Dates: start: 20140922
  46. FARXIGA [Suspect]
     Active Substance: DAPAGLIFLOZIN PROPANEDIOL
     Indication: WEIGHT DECREASED
     Route: 048
     Dates: start: 20140922
  47. FARXIGA [Suspect]
     Active Substance: DAPAGLIFLOZIN PROPANEDIOL
     Indication: BLOOD PRESSURE DECREASED
     Route: 048
     Dates: start: 20140922
  48. SILVER SULFADIAZIN [Concomitant]
     Active Substance: SILVER SULFADIAZINE
     Dates: start: 20170307
  49. VENTOLIN [Concomitant]
     Active Substance: ALBUTEROL SULFATE
     Dates: start: 20130305
  50. FLUCONAZOLE. [Concomitant]
     Active Substance: FLUCONAZOLE
     Dates: start: 20160412
  51. CLONIDINE HCL [Concomitant]
     Active Substance: CLONIDINE HYDROCHLORIDE
     Dates: start: 20160829
  52. TRANDATE [Concomitant]
     Active Substance: LABETALOL HYDROCHLORIDE
  53. NARCAN [Concomitant]
     Active Substance: NALOXONE HYDROCHLORIDE
  54. PERIDEX [Concomitant]
     Active Substance: CHLORHEXIDINE GLUCONATE
  55. METOLAZONE. [Concomitant]
     Active Substance: METOLAZONE
  56. DOXYCYCLINE MONOHYDRATE [Concomitant]
     Active Substance: DOXYCYCLINE
  57. GLUCAGON. [Concomitant]
     Active Substance: GLUCAGON
  58. FARXIGA [Suspect]
     Active Substance: DAPAGLIFLOZIN PROPANEDIOL
     Indication: DIABETES MELLITUS
     Route: 048
     Dates: start: 20140922
  59. FARXIGA [Suspect]
     Active Substance: DAPAGLIFLOZIN PROPANEDIOL
     Indication: DIABETES MELLITUS
     Route: 048
     Dates: start: 20140716, end: 20171204
  60. FARXIGA [Suspect]
     Active Substance: DAPAGLIFLOZIN PROPANEDIOL
     Indication: BLOOD PRESSURE DECREASED
     Route: 048
     Dates: start: 20140716, end: 20171204
  61. JANUVIA [Concomitant]
     Active Substance: SITAGLIPTIN PHOSPHATE
     Dates: start: 20171025
  62. PRAVASTATIN SODIUM. [Concomitant]
     Active Substance: PRAVASTATIN SODIUM
     Dates: start: 20160127
  63. DILAUDID [Concomitant]
     Active Substance: HYDROMORPHONE HYDROCHLORIDE
  64. CARDENE [Concomitant]
     Active Substance: NICARDIPINE HYDROCHLORIDE
  65. CIPROFLOXACIN HYDROCHLORIDE. [Concomitant]
     Active Substance: CIPROFLOXACIN HYDROCHLORIDE
  66. AMOX [Concomitant]
     Active Substance: UNSPECIFIED INGREDIENT
     Dates: start: 20180301
  67. AMLODIPINE BESYLATE. [Concomitant]
     Active Substance: AMLODIPINE BESYLATE
     Dates: start: 20130305
  68. LEVOFLOXACIN. [Concomitant]
     Active Substance: LEVOFLOXACIN
     Dates: start: 20151209
  69. VANCOCIN [Concomitant]
     Active Substance: VANCOMYCIN HYDROCHLORIDE
  70. LEVOPHED [Concomitant]
     Active Substance: NOREPINEPHRINE BITARTRATE
  71. SUBLIMAZE [Concomitant]
     Active Substance: FENTANYL CITRATE
  72. TYLENOL [Concomitant]
     Active Substance: ACETAMINOPHEN
  73. COREG [Concomitant]
     Active Substance: CARVEDILOL
  74. CLONAZEPAM. [Concomitant]
     Active Substance: CLONAZEPAM
  75. METFORMIN [Concomitant]
     Active Substance: METFORMIN HYDROCHLORIDE
  76. METRONIDAZOLE. [Concomitant]
     Active Substance: METRONIDAZOLE
  77. SENNOSIDES-DOCUSATE SODIUM [Concomitant]
     Active Substance: DOCUSATE SODIUM\SENNOSIDES
  78. HUMALOG [Concomitant]
     Active Substance: INSULIN LISPRO

REACTIONS (5)
  - Necrotising soft tissue infection [Unknown]
  - Sepsis [Unknown]
  - Necrotising fasciitis [Unknown]
  - Fournier^s gangrene [Unknown]
  - Abscess limb [Unknown]

NARRATIVE: CASE EVENT DATE: 20151210
